FAERS Safety Report 23102004 (Version 1)
Quarter: 2023Q4

REPORT INFORMATION
  Report Type: Spontaneous
  Country: GR (occurrence: GR)
  Receive Date: 20231025
  Receipt Date: 20231025
  Transmission Date: 20240109
  Serious: Yes (Death, Life-Threatening, Other)
  Sender: FDA-Public Use
  Company Number: GR-AMGEN-GRCSP2023185825

PATIENT

DRUGS (4)
  1. CARFILZOMIB [Suspect]
     Active Substance: CARFILZOMIB
     Indication: Plasma cell myeloma refractory
     Dosage: UNK
     Route: 065
  2. BELANTAMAB MAFODOTIN [Suspect]
     Active Substance: BELANTAMAB MAFODOTIN
     Indication: Plasma cell myeloma refractory
     Dosage: UNK
     Route: 065
  3. POMALIDOMIDE [Suspect]
     Active Substance: POMALIDOMIDE
     Indication: Plasma cell myeloma refractory
     Dosage: UNK
     Route: 065
  4. DEXAMETHASONE [Suspect]
     Active Substance: DEXAMETHASONE
     Indication: Plasma cell myeloma refractory
     Dosage: UNK
     Route: 065

REACTIONS (43)
  - Death [Fatal]
  - Pleural effusion [Fatal]
  - Septic shock [Fatal]
  - Sepsis [Fatal]
  - COVID-19 [Fatal]
  - COVID-19 pneumonia [Fatal]
  - Pneumonia [Fatal]
  - Respiratory tract infection [Fatal]
  - Adverse event [Fatal]
  - Cardiac arrest [Fatal]
  - Cardiac failure congestive [Fatal]
  - Acute myeloid leukaemia [Fatal]
  - Acute myocardial infarction [Unknown]
  - Thrombocytopenia [Unknown]
  - Platelet count decreased [Unknown]
  - Vision blurred [Unknown]
  - Anaemia [Unknown]
  - Neutropenia [Unknown]
  - Keratopathy [Unknown]
  - Leukopenia [Unknown]
  - Neutrophil count decreased [Unknown]
  - Febrile neutropenia [Unknown]
  - Lymphopenia [Unknown]
  - Visual impairment [Unknown]
  - Hypercalcaemia [Unknown]
  - Epistaxis [Unknown]
  - Bone pain [Unknown]
  - Dyspnoea [Unknown]
  - Acute kidney injury [Unknown]
  - Hyponatraemia [Unknown]
  - Atrial fibrillation [Unknown]
  - Blood creatine phosphokinase increased [Unknown]
  - Visual acuity reduced [Unknown]
  - Hypocalcaemia [Unknown]
  - Renal failure [Unknown]
  - Myelosuppression [Unknown]
  - Neutropenic sepsis [Unknown]
  - Infusion related reaction [Unknown]
  - Plasma cell myeloma refractory [Unknown]
  - Haemorrhage [Unknown]
  - Ulcerative keratitis [Unknown]
  - Therapy non-responder [Unknown]
  - Corneal erosion [Unknown]
